FAERS Safety Report 4512202-4 (Version None)
Quarter: 2004Q4

REPORT INFORMATION
  Report Type: 
  Country: None (occurrence: None)
  Receive Date: 20041123
  Receipt Date: 20041213
  Transmission Date: 20050328
  Serious: Yes (Disabling)
  Sender: FDA-Public Use
  Company Number: 2002-BP-05978BP

PATIENT
  Age: 60 Year
  Sex: Male

DRUGS (11)
  1. MICARDIS [Suspect]
     Indication: CARDIOVASCULAR DISORDER
     Dosage: PO
     Route: 048
     Dates: start: 20020101
  2. MICARDIS [Suspect]
     Indication: CEREBROVASCULAR ACCIDENT
     Dosage: PO
     Route: 048
     Dates: start: 20020101
  3. MICARDIS [Suspect]
     Indication: PROPHYLAXIS
     Dosage: PO
     Route: 048
     Dates: start: 20020101
  4. RAMIPRIL [Suspect]
     Indication: CARDIOVASCULAR DISORDER
     Dosage: PO
     Route: 048
     Dates: start: 20020101
  5. RAMIPRIL [Suspect]
     Indication: CEREBROVASCULAR ACCIDENT
     Dosage: PO
     Route: 048
     Dates: start: 20020101
  6. RAMIPRIL [Suspect]
     Indication: MYOCARDIAL INFARCTION
     Dosage: PO
     Route: 048
     Dates: start: 20020101
  7. RAMIPRIL [Suspect]
     Indication: PROPHYLAXIS
     Dosage: PO
     Route: 048
     Dates: start: 20020101
  8. METOPROLOL TARTRATE [Suspect]
     Dates: start: 20020101
  9. FELODIPINE [Suspect]
     Dates: start: 20020101
  10. ATORVASTATIN [Concomitant]
  11. ASA (ACETYSALICYLIC ACID) [Concomitant]

REACTIONS (2)
  - DIZZINESS [None]
  - SYNCOPE [None]
